FAERS Safety Report 11180730 (Version 1)
Quarter: 2015Q2

REPORT INFORMATION
  Report Type: Spontaneous
  Country: TR (occurrence: None)
  Receive Date: 20150609
  Receipt Date: 20150609
  Transmission Date: 20150821
  Serious: Yes (Hospitalization)
  Sender: FDA-Public Use
  Company Number: IPC201505-000360

PATIENT
  Age: 21 Year
  Sex: Male

DRUGS (1)
  1. WARFARIN (WARFARIN) (WARFARIN) [Suspect]
     Active Substance: WARFARIN

REACTIONS (4)
  - Retroperitoneal haematoma [None]
  - Platelet count decreased [None]
  - Neuropathy peripheral [None]
  - International normalised ratio increased [None]
